FAERS Safety Report 19084509 (Version 1)
Quarter: 2021Q2

REPORT INFORMATION
  Report Type: Report from Study
  Country: DE (occurrence: DE)
  Receive Date: 20210401
  Receipt Date: 20210401
  Transmission Date: 20210717
  Serious: Yes (Hospitalization)
  Sender: FDA-Public Use
  Company Number: DE-TAKEDA-DE201837685

PATIENT
  Age: 14 Year
  Sex: Male

DRUGS (32)
  1. ADVATE [Suspect]
     Active Substance: ANTIHEMOPHILIC FACTOR, HUMAN RECOMBINANT
     Indication: FACTOR VIII DEFICIENCY
     Dosage: 1500 UNK
     Route: 042
     Dates: start: 20180708
  2. ADVATE [Suspect]
     Active Substance: ANTIHEMOPHILIC FACTOR, HUMAN RECOMBINANT
     Indication: CHEST INJURY
     Dosage: 2000 UNK, FREQUENCY 3 (UNKNOWN)
     Route: 042
     Dates: start: 20180708
  3. ADVATE [Suspect]
     Active Substance: ANTIHEMOPHILIC FACTOR, HUMAN RECOMBINANT
     Dosage: 2000 UNK, SINGLE
     Route: 042
     Dates: start: 20180709
  4. ADVATE [Suspect]
     Active Substance: ANTIHEMOPHILIC FACTOR, HUMAN RECOMBINANT
     Dosage: 2000 UNK, SINGLE
     Route: 042
     Dates: start: 20180710, end: 20180710
  5. IBUPROFEN. [Concomitant]
     Active Substance: IBUPROFEN
     Indication: PAIN MANAGEMENT
     Dosage: 400 MILLIGRAM, TID
     Route: 065
     Dates: start: 20171004, end: 20171011
  6. ADVATE [Suspect]
     Active Substance: ANTIHEMOPHILIC FACTOR, HUMAN RECOMBINANT
     Indication: PROPHYLAXIS
     Dosage: 1500 UNK
     Route: 042
     Dates: start: 20180708
  7. ADVATE [Suspect]
     Active Substance: ANTIHEMOPHILIC FACTOR, HUMAN RECOMBINANT
     Indication: FACTOR VIII DEFICIENCY
     Dosage: 1500 UNK
     Route: 042
     Dates: start: 20180708
  8. ADVATE [Suspect]
     Active Substance: ANTIHEMOPHILIC FACTOR, HUMAN RECOMBINANT
     Indication: JOINT INJURY
     Dosage: 2000 UNK, FREQUENCY 3 (UNKNOWN)
     Route: 042
     Dates: start: 20180708
  9. ADVATE [Suspect]
     Active Substance: ANTIHEMOPHILIC FACTOR, HUMAN RECOMBINANT
     Dosage: 2000 UNK, SINGLE
     Route: 042
     Dates: start: 20180710, end: 20180710
  10. ADVATE [Suspect]
     Active Substance: ANTIHEMOPHILIC FACTOR, HUMAN RECOMBINANT
     Dosage: 2000 UNK, SINGLE
     Route: 042
     Dates: start: 20180710, end: 20180710
  11. ADVATE [Suspect]
     Active Substance: ANTIHEMOPHILIC FACTOR, HUMAN RECOMBINANT
     Dosage: 1500 INTERNATIONAL UNIT
     Route: 042
     Dates: start: 20180708
  12. ADVATE [Suspect]
     Active Substance: ANTIHEMOPHILIC FACTOR, HUMAN RECOMBINANT
     Dosage: 2000 UNK, SINGLE
     Route: 042
     Dates: start: 20180709
  13. DIMETINDENI MALEAS [Concomitant]
     Indication: URTICARIA
     Dosage: 1 MILLIGRAM PER MILLILITRE, TID
     Route: 050
     Dates: start: 20150608, end: 201506
  14. FENISTIL [Concomitant]
     Active Substance: DIMETHINDENE
     Indication: URTICARIA
     Dosage: UNK
     Route: 065
     Dates: start: 2020, end: 2020
  15. ADVATE [Suspect]
     Active Substance: ANTIHEMOPHILIC FACTOR, HUMAN RECOMBINANT
     Indication: FACTOR VIII DEFICIENCY
     Dosage: 1500 UNK
     Route: 042
     Dates: start: 20180708
  16. ADVATE [Suspect]
     Active Substance: ANTIHEMOPHILIC FACTOR, HUMAN RECOMBINANT
     Indication: CHEST INJURY
     Dosage: 2000 UNK, FREQUENCY 3 (UNKNOWN)
     Route: 042
     Dates: start: 20180708
  17. ADVATE [Suspect]
     Active Substance: ANTIHEMOPHILIC FACTOR, HUMAN RECOMBINANT
     Dosage: 2000 UNK, SINGLE
     Route: 042
     Dates: start: 20180710, end: 20180710
  18. ADVATE [Suspect]
     Active Substance: ANTIHEMOPHILIC FACTOR, HUMAN RECOMBINANT
     Dosage: 2000 UNK, SINGLE
     Route: 042
     Dates: start: 20180710, end: 20180710
  19. ADVATE [Suspect]
     Active Substance: ANTIHEMOPHILIC FACTOR, HUMAN RECOMBINANT
     Indication: CHEST INJURY
     Dosage: 2000 UNK, FREQUENCY 3 (UNKNOWN)
     Route: 042
     Dates: start: 20180708
  20. ADVATE [Suspect]
     Active Substance: ANTIHEMOPHILIC FACTOR, HUMAN RECOMBINANT
     Indication: JOINT INJURY
     Dosage: 2000 UNK, FREQUENCY 3 (UNKNOWN)
     Route: 042
     Dates: start: 20180708
  21. ADVATE [Suspect]
     Active Substance: ANTIHEMOPHILIC FACTOR, HUMAN RECOMBINANT
     Indication: JOINT INJURY
     Dosage: 2000 UNK, FREQUENCY 3 (UNKNOWN)
     Route: 042
     Dates: start: 20180708
  22. ADVATE [Suspect]
     Active Substance: ANTIHEMOPHILIC FACTOR, HUMAN RECOMBINANT
     Indication: FALL
     Dosage: 2000 UNK, SINGLE
     Route: 042
     Dates: start: 20180709
  23. ADVATE [Suspect]
     Active Substance: ANTIHEMOPHILIC FACTOR, HUMAN RECOMBINANT
     Indication: FALL
     Dosage: 2000 UNK, SINGLE
     Route: 042
     Dates: start: 20180709
  24. ADVATE [Suspect]
     Active Substance: ANTIHEMOPHILIC FACTOR, HUMAN RECOMBINANT
     Indication: PROPHYLAXIS
     Dosage: 1500 UNK
     Route: 042
     Dates: start: 20180708
  25. ADVATE [Suspect]
     Active Substance: ANTIHEMOPHILIC FACTOR, HUMAN RECOMBINANT
     Indication: PROPHYLAXIS
     Dosage: 1500 UNK
     Route: 042
     Dates: start: 20180708
  26. ADVATE [Suspect]
     Active Substance: ANTIHEMOPHILIC FACTOR, HUMAN RECOMBINANT
     Indication: FALL
     Dosage: 2000 UNK, SINGLE
     Route: 042
     Dates: start: 20180709
  27. ADVATE [Suspect]
     Active Substance: ANTIHEMOPHILIC FACTOR, HUMAN RECOMBINANT
     Dosage: 2000 UNK, SINGLE
     Route: 042
     Dates: start: 20180710, end: 20180710
  28. ADVATE [Suspect]
     Active Substance: ANTIHEMOPHILIC FACTOR, HUMAN RECOMBINANT
     Dosage: 1500 INTERNATIONAL UNIT
     Route: 042
     Dates: start: 20180708
  29. ADVATE [Suspect]
     Active Substance: ANTIHEMOPHILIC FACTOR, HUMAN RECOMBINANT
     Dosage: 1500 INTERNATIONAL UNIT
     Route: 042
     Dates: start: 20180708
  30. ULTOP [OMEPRAZOLE] [Concomitant]
     Indication: COSTOCHONDRITIS
     Dosage: 20 MILLIGRAM, BID
     Route: 065
     Dates: start: 20171002, end: 20171004
  31. ADVATE [Suspect]
     Active Substance: ANTIHEMOPHILIC FACTOR, HUMAN RECOMBINANT
     Dosage: 2000 UNK, SINGLE
     Route: 042
     Dates: start: 20180709
  32. ULTOP [OMEPRAZOLE] [Concomitant]
     Dosage: 40 MILLIGRAM, BID
     Route: 065
     Dates: start: 20171004, end: 20171011

REACTIONS (1)
  - Fall [Recovered/Resolved]

NARRATIVE: CASE EVENT DATE: 20180708
